FAERS Safety Report 7913382-0 (Version None)
Quarter: 2011Q4

REPORT INFORMATION
  Report Type: 
  Country: None (occurrence: None)
  Receive Date: 20111115
  Receipt Date: 20111107
  Transmission Date: 20120403
  Serious: Yes (Other)
  Sender: FDA-Public Use
  Company Number: US-BIOGENIDEC-2011BI025797

PATIENT
  Age: 29 Year
  Sex: Female

DRUGS (4)
  1. MULTI-VITAMINS [Concomitant]
  2. ZANTAC [Concomitant]
  3. TYSABRI [Suspect]
     Indication: MULTIPLE SCLEROSIS
     Route: 042
     Dates: start: 20080623, end: 20110620
  4. FENTANYL-100 [Concomitant]

REACTIONS (2)
  - PREGNANCY [None]
  - ABORTION MISSED [None]
